FAERS Safety Report 5370568-X (Version None)
Quarter: 2007Q2

REPORT INFORMATION
  Report Type: 
  Country: None (occurrence: None)
  Receive Date: 20070626
  Receipt Date: 20070618
  Transmission Date: 20071010
  Serious: Yes (Hospitalization, Other)
  Sender: FDA-Public Use
  Company Number: US-ELI_LILLY_AND_COMPANY-US200703004026

PATIENT
  Age: 74 Year
  Sex: Female
  Weight: 67.12 kg

DRUGS (2)
  1. ZYPREXA [Suspect]
     Dosage: 2.5 MG, EACH EVENING
     Dates: start: 20020301, end: 20051001
  2. TRIAMCINOLONE [Concomitant]
     Dates: start: 20041001, end: 20050901

REACTIONS (8)
  - CARDIAC FAILURE CONGESTIVE [None]
  - DIABETES MELLITUS [None]
  - DIABETIC COMA [None]
  - DIABETIC KETOACIDOSIS [None]
  - HYPERGLYCAEMIA [None]
  - PANCREATITIS [None]
  - THROMBOSIS [None]
  - WEIGHT DECREASED [None]
